FAERS Safety Report 6590151-8 (Version None)
Quarter: 2010Q1

REPORT INFORMATION
  Report Type: 
  Country: None (occurrence: None)
  Receive Date: 20100212
  Receipt Date: 20100201
  Transmission Date: 20100710
  Serious: Yes (Hospitalization)
  Sender: FDA-Public Use
  Company Number: 233897J09USA

PATIENT
  Age: 49 Year
  Sex: Female

DRUGS (4)
  1. REBIF [Suspect]
     Indication: MULTIPLE SCLEROSIS
     Dosage: 44 MCG, 3 IN 1 WEEKS, SUBCUTANEOUS
     Route: 057
     Dates: start: 20090602
  2. DILANTIN (PHYENYTOIN /00017401/) [Concomitant]
  3. XANAX [Concomitant]
  4. CYMABLTA (DULOXETINE) [Concomitant]

REACTIONS (12)
  - ANTICONVULSANT DRUG LEVEL DECREASED [None]
  - ANTICONVULSANT DRUG LEVEL INCREASED [None]
  - BLOOD GLUCOSE DECREASED [None]
  - CONVULSION [None]
  - HEAD INJURY [None]
  - HEPATIC ENZYME INCREASED [None]
  - HYPERTENSION [None]
  - INFLUENZA LIKE ILLNESS [None]
  - INJECTION SITE ERYTHEMA [None]
  - INJECTION SITE HAEMATOMA [None]
  - INJECTION SITE PAIN [None]
  - SKIN DISORDER [None]
